FAERS Safety Report 5121682-5 (Version None)
Quarter: 2006Q4

REPORT INFORMATION
  Report Type: 
  Country: None (occurrence: None)
  Receive Date: 20061006
  Receipt Date: 20060927
  Transmission Date: 20070319
  Serious: Yes (Other)
  Sender: FDA-Public Use
  Company Number: US-GLAXOSMITHKLINE-A0621674A

PATIENT
  Sex: Female

DRUGS (13)
  1. LOTRONEX [Suspect]
     Indication: IRRITABLE BOWEL SYNDROME
     Dosage: 1MG PER DAY
     Route: 048
     Dates: start: 20060801
  2. MAXZIDE [Concomitant]
  3. BENADRYL [Concomitant]
  4. LOPRESSOR [Concomitant]
  5. MICRO-K [Concomitant]
  6. DILANTIN [Concomitant]
  7. MYSOLINE [Concomitant]
  8. SLOW MAG [Concomitant]
  9. KLONOPIN [Concomitant]
  10. PREVACID [Concomitant]
  11. ZYRTEC [Concomitant]
  12. NITROQUICK [Concomitant]
  13. ALBUTEROL [Concomitant]

REACTIONS (3)
  - DIARRHOEA [None]
  - DRUG INEFFECTIVE [None]
  - GASTROENTERITIS VIRAL [None]
